FAERS Safety Report 19849720 (Version 1)
Quarter: 2021Q3

REPORT INFORMATION
  Report Type: Spontaneous
  Country: JP (occurrence: JP)
  Receive Date: 20210917
  Receipt Date: 20210917
  Transmission Date: 20211014
  Serious: Yes (Other)
  Sender: FDA-Public Use
  Company Number: JP-ELI_LILLY_AND_COMPANY-JP202108012243

PATIENT
  Age: 73 Year
  Sex: Male

DRUGS (3)
  1. LYUMJEV [Suspect]
     Active Substance: INSULIN LISPRO-AABC
     Indication: TYPE 2 DIABETES MELLITUS
     Dosage: 27 INTERNATIONAL UNIT
     Route: 058
     Dates: start: 20210810, end: 20210909
  2. SEIBULE [Suspect]
     Active Substance: MIGLITOL
     Indication: TYPE 2 DIABETES MELLITUS
     Dosage: 50 MG, BID
     Route: 048
  3. TRESIBA [Suspect]
     Active Substance: INSULIN DEGLUDEC
     Indication: TYPE 2 DIABETES MELLITUS
     Dosage: 34 INTERNATIONAL UNIT
     Route: 058

REACTIONS (3)
  - Eye opacity [Recovering/Resolving]
  - Hyperhidrosis [Recovering/Resolving]
  - Blood glucose fluctuation [Unknown]
